FAERS Safety Report 11653561 (Version 2)
Quarter: 2015Q4

REPORT INFORMATION
  Report Type: Spontaneous
  Country: FI (occurrence: FI)
  Receive Date: 20151022
  Receipt Date: 20151130
  Transmission Date: 20160304
  Serious: No
  Sender: FDA-Public Use
  Company Number: FI-ELI_LILLY_AND_COMPANY-FI201510005173

PATIENT
  Age: 20 Year
  Sex: Female

DRUGS (3)
  1. ZYPADHERA [Suspect]
     Active Substance: OLANZAPINE PAMOATE
     Indication: PSYCHOTIC DISORDER
     Dosage: 405 MG, EVERY TWO WEEKS
     Route: 030
     Dates: start: 20150724, end: 20151013
  2. TENOX                              /00393701/ [Concomitant]
     Indication: INSOMNIA
     Dosage: 20 MG, PRN
     Route: 048
     Dates: start: 20150607
  3. CERAZETTE                          /00754001/ [Concomitant]
     Active Substance: DESOGESTREL
     Indication: CONTRACEPTION
     Dosage: 1 UG, QD
     Route: 048
     Dates: start: 20150607

REACTIONS (6)
  - Injection site erythema [Recovered/Resolved]
  - Injection site pain [Recovered/Resolved]
  - Prescribed overdose [Recovered/Resolved]
  - Infusion site swelling [Recovered/Resolved]
  - Burning sensation [Recovered/Resolved]
  - Pyrexia [Recovered/Resolved]

NARRATIVE: CASE EVENT DATE: 20151015
